FAERS Safety Report 8328799-2 (Version None)
Quarter: 2012Q2

REPORT INFORMATION
  Report Type: 
  Country: None (occurrence: None)
  Receive Date: 20120502
  Receipt Date: 20120427
  Transmission Date: 20120825
  Serious: Yes (Life-Threatening, Other)
  Sender: FDA-Public Use
  Company Number: JP-ELI_LILLY_AND_COMPANY-JP201204002623

PATIENT
  Sex: Female
  Weight: 51 kg

DRUGS (14)
  1. ALIMTA [Suspect]
     Indication: LUNG ADENOCARCINOMA STAGE IV
     Dosage: 400 MG/M2, UNK
     Route: 042
     Dates: start: 20120322, end: 20120322
  2. AZULENE SODIUM SULFONATE W/LEVOGLUTAMIDE [Concomitant]
     Indication: GASTRITIS
     Dosage: 1 G, TID
     Route: 048
     Dates: start: 20120323
  3. ADONA [Concomitant]
     Indication: HAEMOPTYSIS
     Dosage: 30 MG, TID
     Route: 048
     Dates: start: 20120325, end: 20120326
  4. LECICARBON [Concomitant]
     Indication: CONSTIPATION
     Dosage: UNK
     Route: 054
     Dates: start: 20120326
  5. PARAPLATIN AQ [Concomitant]
     Indication: LUNG ADENOCARCINOMA STAGE IV
     Dosage: 450 MG, UNK
     Route: 042
     Dates: start: 20120322, end: 20120322
  6. AVASTIN [Concomitant]
     Indication: LUNG ADENOCARCINOMA STAGE IV
     Dosage: 765 MG, UNK
     Route: 042
     Dates: start: 20120322, end: 20120322
  7. VITAMIN B12 [Concomitant]
     Dosage: 1 MG, UNK
     Route: 030
     Dates: start: 20120314
  8. MAGMITT [Concomitant]
     Indication: CONSTIPATION
     Dosage: 330 MG, TID
     Route: 048
     Dates: start: 20120323
  9. DEXAMETHASONE SODIUM PHOSPHATE [Concomitant]
     Indication: PROPHYLAXIS OF NAUSEA AND VOMITING
     Dosage: 4 MG, BID
     Route: 048
     Dates: start: 20120322, end: 20120323
  10. OMEPRAZOLE [Concomitant]
     Indication: GASTRITIS
     Dosage: 10 MG, QD
     Route: 048
     Dates: start: 20120323
  11. ZOLPIDEM [Concomitant]
     Indication: INSOMNIA
     Dosage: 5 MG, QD
     Route: 048
     Dates: start: 20120323
  12. FOLIAMIN [Concomitant]
     Dosage: 0.5 MG, UNK
     Route: 048
     Dates: start: 20120314
  13. TRANSAMINE CAP [Concomitant]
     Indication: HAEMOPTYSIS
     Dosage: 250 MG, TID
     Route: 048
     Dates: start: 20120325, end: 20120326
  14. YODEL [Concomitant]
     Indication: CONSTIPATION
     Dosage: 80 MG, QD
     Route: 048
     Dates: start: 20120326, end: 20120327

REACTIONS (2)
  - INTERSTITIAL LUNG DISEASE [None]
  - BLOOD GLUCOSE INCREASED [None]
